FAERS Safety Report 22206396 (Version 1)
Quarter: 2023Q2

REPORT INFORMATION
  Report Type: Spontaneous
  Country: JP (occurrence: JP)
  Receive Date: 20230413
  Receipt Date: 20230413
  Transmission Date: 20230721
  Serious: Yes (Hospitalization)
  Sender: FDA-Public Use
  Company Number: JP-MEDA-2016040100

PATIENT
  Age: 28 Year
  Sex: Female

DRUGS (1)
  1. MESALAMINE [Suspect]
     Active Substance: MESALAMINE
     Indication: Colitis ulcerative
     Dosage: 3600 MG,UNKNOWN

REACTIONS (3)
  - Lung consolidation [Unknown]
  - Drug hypersensitivity [Unknown]
  - Pleurisy [Recovering/Resolving]
